FAERS Safety Report 9207260 (Version 1)
Quarter: 2013Q1

REPORT INFORMATION
  Report Type: Spontaneous
  Country: US (occurrence: None)
  Receive Date: 20120802
  Receipt Date: 20120802
  Transmission Date: 20140127
  Serious: Yes (Hospitalization)
  Sender: FDA-Public Use
  Company Number: AMAG201200612

PATIENT
  Sex: Male

DRUGS (3)
  1. FERAHEME (FERUMOXYTOL) INJECTION, 510MG [Suspect]
     Indication: IRON DEFICIENCY ANAEMIA
     Route: 042
     Dates: start: 20111201, end: 20111201
  2. METFORMIN (METFORMIN) [Concomitant]
  3. IRON (IRON) [Concomitant]

REACTIONS (7)
  - Hypersensitivity [None]
  - Dyspnoea [None]
  - Unresponsive to stimuli [None]
  - Hyperhidrosis [None]
  - Nausea [None]
  - Vomiting [None]
  - Diarrhoea [None]
